FAERS Safety Report 5378558-8 (Version None)
Quarter: 2007Q3

REPORT INFORMATION
  Report Type: 
  Country: None (occurrence: None)
  Receive Date: 20070705
  Receipt Date: 20070625
  Transmission Date: 20080115
  Serious: Yes (Other)
  Sender: FDA-Public Use
  Company Number: US-JNJFOC-20070606221

PATIENT
  Sex: Female

DRUGS (8)
  1. DOXIL [Suspect]
     Indication: OVARIAN CANCER
     Route: 042
  2. CRESTOR [Concomitant]
     Route: 065
  3. ZOLOFT [Concomitant]
     Route: 065
  4. ACTONEL [Concomitant]
     Route: 065
  5. VITAMIN B6 [Concomitant]
     Route: 065
  6. VITAMIN B-12 [Concomitant]
     Route: 065
  7. VITAMIN D [Concomitant]
     Route: 065
  8. CALCIUM CHLORIDE [Concomitant]
     Route: 065

REACTIONS (3)
  - EXCORIATION [None]
  - PALMAR-PLANTAR ERYTHRODYSAESTHESIA SYNDROME [None]
  - PETECHIAE [None]
